FAERS Safety Report 15281016 (Version 1)
Quarter: 2018Q3

REPORT INFORMATION
  Report Type: Report from Study
  Country: US (occurrence: US)
  Receive Date: 20180815
  Receipt Date: 20180815
  Transmission Date: 20181010
  Serious: No
  Sender: FDA-Public Use
  Company Number: PHEH2018US033520

PATIENT
  Sex: Male
  Weight: 136.8 kg

DRUGS (1)
  1. COSENTYX [Suspect]
     Active Substance: SECUKINUMAB
     Indication: DYSHIDROTIC ECZEMA
     Dosage: 300 MG, QMO
     Route: 058
     Dates: start: 201805

REACTIONS (4)
  - Product use in unapproved indication [Unknown]
  - Sluggishness [Unknown]
  - Influenza like illness [Unknown]
  - Fatigue [Unknown]
